FAERS Safety Report 23190020 (Version 2)
Quarter: 2024Q1

REPORT INFORMATION
  Report Type: Report from Study
  Country: US (occurrence: US)
  Receive Date: 20231116
  Receipt Date: 20240124
  Transmission Date: 20240410
  Serious: No
  Sender: FDA-Public Use
  Company Number: US-002147023-NVSC2023US242861

PATIENT
  Sex: Male

DRUGS (1)
  1. ENTRESTO [Suspect]
     Active Substance: SACUBITRIL\VALSARTAN
     Indication: Product used for unknown indication
     Dosage: UNK, BID
     Route: 065
     Dates: start: 202310

REACTIONS (8)
  - Asthenia [Recovering/Resolving]
  - Fatigue [Unknown]
  - Hypotension [Recovering/Resolving]
  - Illness [Recovering/Resolving]
  - Nasopharyngitis [Recovering/Resolving]
  - Chest discomfort [Unknown]
  - Memory impairment [Unknown]
  - Inappropriate schedule of product administration [Unknown]
